FAERS Safety Report 8264970-6 (Version None)
Quarter: 2012Q2

REPORT INFORMATION
  Report Type: 
  Country: None (occurrence: None)
  Receive Date: 20120404
  Receipt Date: 20120321
  Transmission Date: 20120825
  Serious: No
  Sender: FDA-Public Use
  Company Number: 21-703-2012-00001

PATIENT
  Age: 66 Year
  Sex: Female
  Weight: 66 kg

DRUGS (3)
  1. PRISMASOL B22GK 2/0 [Suspect]
     Indication: FLUID REPLACEMENT
     Dosage: HEMODIALYSIS, INTRAVENOUS
     Route: 042
     Dates: start: 20120304, end: 20120305
  2. PRISMAFLEX HF1000 [Concomitant]
  3. PRISMAFLEX SN PA0589 [Concomitant]

REACTIONS (3)
  - MEDICAL DEVICE COMPLICATION [None]
  - DEVICE ALARM ISSUE [None]
  - HAEMORRHAGE [None]
